FAERS Safety Report 17142633 (Version 1)
Quarter: 2019Q4

REPORT INFORMATION
  Report Type: Spontaneous
  Country: CN (occurrence: CN)
  Receive Date: 20191211
  Receipt Date: 20191211
  Transmission Date: 20200122
  Serious: Yes (Hospitalization, Other)
  Sender: FDA-Public Use
  Company Number: CN-009507513-1912CHN003697

PATIENT
  Age: 69 Year
  Sex: Male
  Weight: 76 kg

DRUGS (6)
  1. KEYTRUDA [Suspect]
     Active Substance: PEMBROLIZUMAB
     Indication: CHEMOTHERAPY
     Dosage: 200 MILLIGRAM, Q3W
     Route: 041
     Dates: start: 20190925, end: 20190925
  2. PACLITAXEL. [Suspect]
     Active Substance: PACLITAXEL
     Indication: CHEMOTHERAPY
     Dosage: 300 MILLIGRAM, QD
     Route: 041
     Dates: start: 20190925, end: 20190925
  3. BEVACIZUMAB. [Suspect]
     Active Substance: BEVACIZUMAB
     Dosage: 1000 MG, QD
     Route: 041
     Dates: start: 20190925, end: 20190925
  4. SODIUM CHLORIDE. [Concomitant]
     Active Substance: SODIUM CHLORIDE
     Indication: MENSTRUATION IRREGULAR
     Dosage: 250 MILLILITER, QD
     Route: 041
     Dates: start: 20190925, end: 20190925
  5. SODIUM CHLORIDE. [Concomitant]
     Active Substance: SODIUM CHLORIDE
     Dosage: 100 MILLILITER, QD
     Route: 041
     Dates: start: 20190925, end: 20190925
  6. DEXTROSE. [Concomitant]
     Active Substance: DEXTROSE
     Indication: MENSTRUATION IRREGULAR
     Dosage: 500 MILLILITER, QD
     Route: 041
     Dates: start: 20190925, end: 20190925

REACTIONS (2)
  - White blood cell count decreased [Recovering/Resolving]
  - Neutrophil count decreased [Recovering/Resolving]

NARRATIVE: CASE EVENT DATE: 20190928
